FAERS Safety Report 9141208 (Version 2)
Quarter: 2014Q1

REPORT INFORMATION
  Report Type: Spontaneous
  Country: US (occurrence: US)
  Receive Date: 20130305
  Receipt Date: 20140203
  Transmission Date: 20141002
  Serious: No
  Sender: FDA-Public Use
  Company Number: US-AMGEN-USASP2013008003

PATIENT
  Age: 52 Year
  Sex: Female
  Weight: 80 kg

DRUGS (5)
  1. ENBREL [Suspect]
     Indication: PSORIATIC ARTHROPATHY
     Dosage: 50 MG, 2 TIMES/WK
     Route: 058
     Dates: start: 20121205, end: 201401
  2. ELAVIL                             /00002202/ [Concomitant]
     Indication: PAIN
     Dosage: 10 MG, UNK
     Route: 048
  3. PROPRANOLOL [Concomitant]
     Indication: HYPERTENSION
     Dosage: 180 MG, UNK
     Route: 048
  4. SYNTHYROID [Concomitant]
     Indication: HYPOTHYROIDISM
     Dosage: 40 MG, UNK
     Route: 048
  5. METFORMIN [Concomitant]
     Indication: DIABETES MELLITUS
     Dosage: 50 MG, UNK
     Route: 048

REACTIONS (9)
  - Abdominal pain [Not Recovered/Not Resolved]
  - Diarrhoea [Not Recovered/Not Resolved]
  - Lactose intolerance [Not Recovered/Not Resolved]
  - Incorrect product storage [Not Recovered/Not Resolved]
  - Pain in extremity [Not Recovered/Not Resolved]
  - Insomnia [Not Recovered/Not Resolved]
  - Fear [Not Recovered/Not Resolved]
  - Chills [Not Recovered/Not Resolved]
  - Psoriasis [Not Recovered/Not Resolved]
